FAERS Safety Report 17636440 (Version 3)
Quarter: 2022Q1

REPORT INFORMATION
  Report Type: Spontaneous
  Country: CA (occurrence: CA)
  Receive Date: 20200407
  Receipt Date: 20220113
  Transmission Date: 20220423
  Serious: No
  Sender: FDA-Public Use
  Company Number: CA-TOLMAR, INC.-20CA020565

PATIENT
  Sex: Male

DRUGS (3)
  1. ELIGARD [Suspect]
     Active Substance: LEUPROLIDE ACETATE
     Indication: Product used for unknown indication
     Dosage: 22.5 MG, Q 3 MONTH
     Route: 058
     Dates: start: 2014
  2. ELIGARD [Suspect]
     Active Substance: LEUPROLIDE ACETATE
     Dosage: 22.5 MG, Q 3 MONTH
     Route: 058
     Dates: start: 20200303
  3. ELIGARD [Suspect]
     Active Substance: LEUPROLIDE ACETATE
     Dosage: 22.5 MG, Q 3 MONTH
     Route: 058

REACTIONS (8)
  - Wrong technique in product usage process [Unknown]
  - Product administration error [Unknown]
  - Incorrect dose administered [Unknown]
  - Intercepted product preparation error [Unknown]
  - Device leakage [Unknown]
  - Product dose omission issue [Unknown]
  - Syringe issue [Unknown]
  - Needle issue [Unknown]

NARRATIVE: CASE EVENT DATE: 20200303
